FAERS Safety Report 17552307 (Version 1)
Quarter: 2020Q1

REPORT INFORMATION
  Report Type: Spontaneous
  Country: DE (occurrence: DE)
  Receive Date: 20200317
  Receipt Date: 20200317
  Transmission Date: 20200409
  Serious: Yes (Other)
  Sender: FDA-Public Use
  Company Number: DE-BAUSCH-BL-2020-007923

PATIENT
  Age: 40 Year
  Sex: Female
  Weight: 95 kg

DRUGS (12)
  1. VENLAFAXINE HYDROCHLORIDE. [Suspect]
     Active Substance: VENLAFAXINE HYDROCHLORIDE
     Route: 065
  2. VENLAFAXINE HYDROCHLORIDE. [Suspect]
     Active Substance: VENLAFAXINE HYDROCHLORIDE
     Indication: PRODUCT USED FOR UNKNOWN INDICATION
     Route: 065
  3. SPIRONOLACTON [Concomitant]
     Active Substance: SPIRONOLACTONE
     Indication: PRODUCT USED FOR UNKNOWN INDICATION
     Dosage: 1 DF, 1X/DAY IN MORNING
  4. TREVILOR RETARD [Suspect]
     Active Substance: VENLAFAXINE HYDROCHLORIDE
     Indication: PRODUCT USED FOR UNKNOWN INDICATION
     Route: 065
  5. VENTOLAIR [Concomitant]
     Active Substance: BECLOMETHASONE DIPROPIONATE
     Indication: PRODUCT USED FOR UNKNOWN INDICATION
     Dosage: DOSE: 1 (UNSPECIFIED UNIT)?ONE IN THE MORNING
  6. PANTOPRAZOL [PANTOPRAZOLE] [Concomitant]
     Active Substance: PANTOPRAZOLE
     Indication: PRODUCT USED FOR UNKNOWN INDICATION
     Dosage: 1 DF, 1X/DAY IN MORNING
  7. NEBIVOLOL. [Concomitant]
     Active Substance: NEBIVOLOL
     Indication: PRODUCT USED FOR UNKNOWN INDICATION
     Dosage: 0.5 DF, 2X/DAY
  8. TORASEMID [Concomitant]
     Active Substance: TORSEMIDE
     Indication: PRODUCT USED FOR UNKNOWN INDICATION
     Dosage: 1 DF, 1X/DAY IN MORNING
  9. VALSACOR [Concomitant]
     Active Substance: VALSARTAN
     Indication: PRODUCT USED FOR UNKNOWN INDICATION
     Dosage: 0.5 DF, 2X/DAY
  10. LEVOCETIRIZIN [Concomitant]
     Active Substance: LEVOCETIRIZINE DIHYDROCHLORIDE
     Indication: PRODUCT USED FOR UNKNOWN INDICATION
     Dosage: AS NEEDED (FREQUENCY: ONCE AS REQUIRED)
  11. ASPIRIN. [Concomitant]
     Active Substance: ASPIRIN
     Indication: PRODUCT USED FOR UNKNOWN INDICATION
     Dosage: DOSE: 1 (UNSPECIFIED UNIT)?ONE IN THE MORNING
  12. VELMETIA [Concomitant]
     Active Substance: METFORMIN\SITAGLIPTIN
     Indication: PRODUCT USED FOR UNKNOWN INDICATION
     Dosage: 1 DF (50/1000), MORNING

REACTIONS (4)
  - Cardiac failure [Unknown]
  - Weight increased [Unknown]
  - Drug dependence [Unknown]
  - Diabetes mellitus [Unknown]

NARRATIVE: CASE EVENT DATE: 20010515
